FAERS Safety Report 11827210 (Version 1)
Quarter: 2015Q4

REPORT INFORMATION
  Report Type: Other
  Country: GB (occurrence: GB)
  Receive Date: 20151211
  Receipt Date: 20151211
  Transmission Date: 20160305
  Serious: Yes (Hospitalization)
  Sender: FDA-Public Use
  Company Number: GB-MYLANLABS-2015M1043088

PATIENT

DRUGS (1)
  1. AZATHIOPRINE. [Suspect]
     Active Substance: AZATHIOPRINE
     Indication: GRANULOMATOSIS WITH POLYANGIITIS
     Dosage: 150 MG, QD (100MG IN THE MORNING AND 50MG IN THE EVENING. DOSE TITRATED)
     Route: 048
     Dates: start: 20150401

REACTIONS (3)
  - Blood disorder [Unknown]
  - Neutropenia [Unknown]
  - Coagulopathy [Unknown]

NARRATIVE: CASE EVENT DATE: 20151116
